FAERS Safety Report 4947969-4 (Version None)
Quarter: 2006Q1

REPORT INFORMATION
  Report Type: 
  Country: None (occurrence: None)
  Receive Date: 20060320
  Receipt Date: 20050930
  Transmission Date: 20060701
  Serious: Yes (Death, Other)
  Sender: FDA-Public Use
  Company Number: US-MERCK-0510USA01413

PATIENT
  Age: 21 Year
  Sex: Male

DRUGS (1)
  1. VIOXX [Suspect]
     Route: 048

REACTIONS (11)
  - ABDOMINAL PAIN [None]
  - BACK INJURY [None]
  - BACK PAIN [None]
  - CEREBROVASCULAR ACCIDENT [None]
  - DEATH [None]
  - DYSPNOEA [None]
  - MYOCARDIAL INFARCTION [None]
  - NECK INJURY [None]
  - POST-TRAUMATIC HEADACHE [None]
  - PULMONARY EMBOLISM [None]
  - THROAT IRRITATION [None]
